FAERS Safety Report 6274671-1 (Version None)
Quarter: 2009Q3

REPORT INFORMATION
  Report Type: 
  Country: None (occurrence: None)
  Receive Date: 20090717
  Receipt Date: 20090704
  Transmission Date: 20100115
  Serious: Yes (Hospitalization)
  Sender: FDA-Public Use
  Company Number: ADE2009-0672

PATIENT
  Age: 49 Year
  Sex: Female
  Weight: 89 kg

DRUGS (10)
  1. ONDANSETRON [Suspect]
     Dosage: 4MG - X1
  2. PAROXETINE HCL [Suspect]
     Indication: DEPRESSION
  3. ATRACURIUM [Concomitant]
  4. DICLOFENAC [Concomitant]
  5. ENFLURANE [Concomitant]
  6. INDOMETHACIN [Concomitant]
  7. MORPHINE [Concomitant]
  8. PROPOFOL [Concomitant]
  9. OXYGEN [Concomitant]
  10. NITROUS OXIDE [Concomitant]

REACTIONS (14)
  - AGITATION [None]
  - ALKALOSIS [None]
  - BLOOD CREATINE PHOSPHOKINASE INCREASED [None]
  - BLOOD PRESSURE DIASTOLIC INCREASED [None]
  - CONFUSIONAL STATE [None]
  - DRUG INTERACTION [None]
  - DYSKINESIA [None]
  - EYE ROLLING [None]
  - HEART RATE INCREASED [None]
  - MYDRIASIS [None]
  - OCULOGYRIC CRISIS [None]
  - PYREXIA [None]
  - SEROTONIN SYNDROME [None]
  - UNRESPONSIVE TO STIMULI [None]
